FAERS Safety Report 23758631 (Version 1)
Quarter: 2024Q2

REPORT INFORMATION
  Report Type: Spontaneous
  Country: US (occurrence: None)
  Receive Date: 20240418
  Receipt Date: 20240418
  Transmission Date: 20240716
  Serious: No
  Sender: FDA-Public Use
  Company Number: US-ROCHE-3332870

PATIENT

DRUGS (1)
  1. AVASTIN [Suspect]
     Active Substance: BEVACIZUMAB
     Indication: Product used for unknown indication
     Route: 065

REACTIONS (6)
  - Polymyalgia rheumatica [Unknown]
  - Muscular weakness [Unknown]
  - Ligament disorder [Unknown]
  - Asthenia [Unknown]
  - Muscular weakness [Unknown]
  - Dysstasia [Unknown]
